FAERS Safety Report 8412975-4 (Version None)
Quarter: 2012Q2

REPORT INFORMATION
  Report Type: 
  Country: None (occurrence: None)
  Receive Date: 20120605
  Receipt Date: 20120529
  Transmission Date: 20120825
  Serious: No
  Sender: FDA-Public Use
  Company Number: US-AMGEN-USASP2012030243

PATIENT
  Age: 59 Year
  Sex: Male

DRUGS (7)
  1. VITAMIN D [Concomitant]
     Dosage: 1 IU, UNK
  2. NEXIUM [Concomitant]
     Dosage: 1 MG, UNK
  3. ANDROGEL [Concomitant]
     Dosage: UNK
  4. LEXAPRO [Concomitant]
     Dosage: 1 MG, UNK
  5. LOSARTAN [Concomitant]
     Dosage: UNK
  6. ENBREL [Suspect]
     Indication: PSORIATIC ARTHROPATHY
     Dosage: 50 MG, QWK
     Dates: start: 20120301
  7. SIMVASTATIN [Concomitant]
     Dosage: 1 MG, UNK

REACTIONS (1)
  - DERMAL CYST [None]
